FAERS Safety Report 23651061 (Version 1)
Quarter: 2024Q1

REPORT INFORMATION
  Report Type: Report from Study
  Country: CO (occurrence: CO)
  Receive Date: 20240320
  Receipt Date: 20240320
  Transmission Date: 20240409
  Serious: Yes (Other)
  Sender: FDA-Public Use
  Company Number: CO-UCBSA-2024013503

PATIENT
  Age: 71 Year
  Sex: Female
  Weight: 45 kg

DRUGS (3)
  1. ROTIGOTINE [Suspect]
     Active Substance: ROTIGOTINE
     Indication: Parkinson^s disease
     Dosage: 12 MILLIGRAM (USES TWO 6 MILLIGRAM PATCHES) EVERY 24 HRS
     Route: 062
     Dates: start: 20210923
  2. CARBIDOPA\LEVODOPA [Concomitant]
     Active Substance: CARBIDOPA\LEVODOPA
     Indication: Parkinson^s disease
     Dosage: UNK
  3. AMANTADINE [Concomitant]
     Active Substance: AMANTADINE
     Indication: Parkinson^s disease
     Dosage: UNK

REACTIONS (3)
  - Seizure [Recovered/Resolved]
  - Hallucination [Not Recovered/Not Resolved]
  - Off label use [Unknown]

NARRATIVE: CASE EVENT DATE: 20210923
